FAERS Safety Report 14104303 (Version 1)
Quarter: 2017Q4

REPORT INFORMATION
  Report Type: Spontaneous
  Country: US (occurrence: US)
  Receive Date: 20171018
  Receipt Date: 20171018
  Transmission Date: 20180321
  Serious: No
  Sender: FDA-Public Use
  Company Number: US-JUBILANT CADISTA PHARMACEUTICALS-2017JUB00207

PATIENT
  Age: 38 Year
  Sex: Male
  Weight: 97.96 kg

DRUGS (5)
  1. LOSARTAN POTASSIUM. [Suspect]
     Active Substance: LOSARTAN POTASSIUM
     Indication: HYPERTENSION
     Dosage: 100 MG, 1X/DAY
     Route: 048
     Dates: start: 2015
  2. ATENOLOL. [Concomitant]
     Active Substance: ATENOLOL
  3. ^MINERALS^ [Concomitant]
  4. CALCIUM [Concomitant]
     Active Substance: CALCIUM
  5. POTASSIUM [Concomitant]
     Active Substance: POTASSIUM

REACTIONS (3)
  - Lactose intolerance [Not Recovered/Not Resolved]
  - Coeliac disease [Not Recovered/Not Resolved]
  - Weight decreased [Not Recovered/Not Resolved]

NARRATIVE: CASE EVENT DATE: 201704
